FAERS Safety Report 9711639 (Version 1)
Quarter: 2013Q4

REPORT INFORMATION
  Report Type: Spontaneous
  Country: US (occurrence: US)
  Receive Date: 20131126
  Receipt Date: 20131126
  Transmission Date: 20140711
  Serious: No
  Sender: FDA-Public Use
  Company Number: US-BRISTOL-MYERS SQUIBB COMPANY-18789651

PATIENT
  Age: 60 Year
  Sex: Female
  Weight: 79.82 kg

DRUGS (3)
  1. BYDUREON [Suspect]
     Indication: TYPE 2 DIABETES MELLITUS
  2. NOVOLOG [Concomitant]
     Dosage: 1DF:50 UNITS AM/ 55 UNITS PM
  3. GLIPIZIDE [Concomitant]

REACTIONS (2)
  - Injection site nodule [Unknown]
  - Injection site pain [Unknown]
